FAERS Safety Report 6428544-1 (Version None)
Quarter: 2009Q4

REPORT INFORMATION
  Report Type: 
  Country: None (occurrence: None)
  Receive Date: 20091105
  Receipt Date: 20091028
  Transmission Date: 20100525
  Serious: Yes (Hospitalization)
  Sender: FDA-Public Use
  Company Number: GXKR2009GB11817

PATIENT
  Age: 89 Year
  Sex: Female

DRUGS (10)
  1. WARFARIN (NGX) [Suspect]
     Indication: ATRIAL FIBRILLATION
     Route: 048
  2. TRIMETHOPRIM [Suspect]
     Indication: URINARY TRACT INFECTION
     Dosage: 200 MG, BID
     Route: 048
     Dates: start: 20091013, end: 20091015
  3. AMIODARONE HYDROCHLORIDE [Concomitant]
     Dosage: UNK
     Route: 065
     Dates: start: 20081101
  4. AMLODIPINE [Concomitant]
     Route: 065
  5. CODEINE PHOSPHATE [Concomitant]
     Route: 065
  6. IBUGEL [Concomitant]
     Route: 065
  7. LANSOPRAZOLE [Concomitant]
     Route: 065
  8. PARACETAMOL [Concomitant]
     Route: 065
  9. SIMVASTATIN [Concomitant]
     Route: 065
  10. TIMOPTOL-LA [Concomitant]
     Route: 065

REACTIONS (3)
  - CONTUSION [None]
  - INTERNATIONAL NORMALISED RATIO INCREASED [None]
  - RENAL IMPAIRMENT [None]
